FAERS Safety Report 26060963 (Version 1)
Quarter: 2025Q4

REPORT INFORMATION
  Report Type: Spontaneous
  Country: US (occurrence: US)
  Receive Date: 20251118
  Receipt Date: 20251118
  Transmission Date: 20260117
  Serious: No
  Sender: ALVOGEN
  Company Number: US-ALVOGEN-2025098498

PATIENT
  Sex: Female

DRUGS (1)
  1. TERIPARATIDE [Suspect]
     Active Substance: TERIPARATIDE
     Indication: Osteoporosis
     Dosage: EXPIRATION DATE: UU-NOV-2026?STRENGTH: 250 MCG/ML?RECEIVED ON 26-JUL-2025
     Route: 058
     Dates: start: 2025

REACTIONS (5)
  - Device malfunction [Unknown]
  - Device delivery system issue [Unknown]
  - Product contamination with body fluid [Unknown]
  - Device defective [Unknown]
  - No adverse event [Unknown]

NARRATIVE: CASE EVENT DATE: 20250101
